FAERS Safety Report 8532503-2 (Version None)
Quarter: 2012Q3

REPORT INFORMATION
  Report Type: 
  Country: None (occurrence: None)
  Receive Date: 20120717
  Receipt Date: 20120717
  Transmission Date: 20120928
  Serious: Yes (Life-Threatening)
  Sender: FDA-Public Use
  Company Number: None

PATIENT
  Age: 27 Year
  Sex: Male
  Weight: 72.5755 kg

DRUGS (1)
  1. LEVETIRACETAM [Suspect]
     Indication: CONVULSION
     Dosage: 500 MG, TWICE A DAY, PO
     Route: 048
     Dates: start: 20120601, end: 20120708

REACTIONS (3)
  - ASPHYXIA [None]
  - SUICIDE ATTEMPT [None]
  - DEPRESSIVE SYMPTOM [None]
